FAERS Safety Report 9330810 (Version 1)
Quarter: 2013Q2

REPORT INFORMATION
  Report Type: Spontaneous
  Country: CA (occurrence: CA)
  Receive Date: 20130605
  Receipt Date: 20130605
  Transmission Date: 20140414
  Serious: Yes (Hospitalization, Other)
  Sender: FDA-Public Use
  Company Number: CA-BAYER-2013-066467

PATIENT
  Age: 26 Year
  Sex: Female

DRUGS (5)
  1. YAZ [Suspect]
  2. YASMIN 28 [Suspect]
     Dosage: UNK
     Dates: start: 20090918, end: 20120820
  3. TRI-CYCLEN LO [Concomitant]
  4. WELLBUTRIN [Concomitant]
  5. PANTOLOC [Concomitant]

REACTIONS (7)
  - Bile duct stone [None]
  - Cholecystitis [None]
  - Abdominal pain upper [None]
  - Chest pain [None]
  - Cholelithiasis [None]
  - Pancreatitis [None]
  - Gallbladder disorder [None]
